FAERS Safety Report 7238567-0 (Version None)
Quarter: 2011Q1

REPORT INFORMATION
  Report Type: 
  Country: None (occurrence: None)
  Receive Date: 20110121
  Receipt Date: 20110110
  Transmission Date: 20110831
  Serious: Yes (Hospitalization, Other)
  Sender: FDA-Public Use
  Company Number: US-ELI_LILLY_AND_COMPANY-US201101002636

PATIENT
  Sex: Female

DRUGS (14)
  1. MORPHINE [Concomitant]
     Dosage: UNK, AS NEEDED
  2. VALIUM [Concomitant]
     Indication: CONVULSION
     Dosage: UNK, AS NEEDED
  3. FERROUS SULFATE [Concomitant]
     Dosage: UNK, DAILY (1/D)
  4. EPIPEN [Concomitant]
     Dosage: UNK, AS NEEDED
  5. ZYRTEC [Concomitant]
     Dosage: UNK, DAILY (1/D)
  6. MIGRANAL [Concomitant]
     Indication: MIGRAINE
     Dosage: UNK, AS NEEDED
     Route: 045
  7. FORTEO [Suspect]
     Indication: OSTEOPOROSIS
     Dosage: 20 UG, DAILY (1/D)
     Dates: end: 20110103
  8. VITAMIN B NOS [Concomitant]
     Dosage: UNK, DAILY (1/D)
  9. FOLIC ACID [Concomitant]
     Dosage: UNK, DAILY (1/D)
  10. COUMADIN [Concomitant]
     Dosage: 4 MG, DAILY (1/D)
  11. COUMADIN [Concomitant]
     Dosage: UNK, DAILY (1/D)
  12. BENADRYL [Concomitant]
     Dosage: UNK, AS NEEDED
  13. FEVERFEW [Concomitant]
  14. FIBERCON [Concomitant]
     Indication: IRRITABLE BOWEL SYNDROME
     Dosage: UNK, DAILY (1/D)

REACTIONS (7)
  - THROMBOSIS [None]
  - FEELING HOT [None]
  - MYALGIA [None]
  - OEDEMA PERIPHERAL [None]
  - BONE PAIN [None]
  - PAIN IN EXTREMITY [None]
  - BLOOD DISORDER [None]
